FAERS Safety Report 9137685 (Version 5)
Quarter: 2013Q2

REPORT INFORMATION
  Report Type: Report from Study
  Country: CA (occurrence: CA)
  Receive Date: 20130304
  Receipt Date: 20130516
  Transmission Date: 20140414
  Serious: Yes (Death, Life-Threatening)
  Sender: FDA-Public Use
  Company Number: PHHY2013CA020105

PATIENT
  Sex: Female

DRUGS (1)
  1. CLOZARIL [Suspect]
     Indication: SCHIZOPHRENIA
     Dosage: 150 MG, DAILY
     Route: 048
     Dates: start: 19931006, end: 20130116

REACTIONS (2)
  - Small cell lung cancer metastatic [Fatal]
  - Neoplasm malignant [Fatal]
